FAERS Safety Report 24148247 (Version 1)
Quarter: 2024Q3

REPORT INFORMATION
  Report Type: Spontaneous
  Country: US (occurrence: None)
  Receive Date: 20240728
  Receipt Date: 20240728
  Transmission Date: 20241017
  Serious: Yes (Other)
  Sender: Public
  Company Number: None

PATIENT
  Age: 54 Year
  Sex: Female
  Weight: 70.2 kg

DRUGS (1)
  1. ACTEMRA ACTPEN [Suspect]
     Active Substance: TOCILIZUMAB
     Indication: Rheumatoid arthritis
     Dosage: OTHER QUANTITY : 1 INJECTION(S)?OTHER FREQUENCY : PER 1 OR 2 WEEKS?
     Route: 058

REACTIONS (13)
  - Headache [None]
  - Eye pain [None]
  - Photophobia [None]
  - Back pain [None]
  - Arthralgia [None]
  - Myalgia [None]
  - Fatigue [None]
  - Sleep disorder [None]
  - Vomiting [None]
  - Diarrhoea [None]
  - Pyrexia [None]
  - Chills [None]
  - Decreased appetite [None]

NARRATIVE: CASE EVENT DATE: 20240629
